FAERS Safety Report 4952722-1 (Version None)
Quarter: 2006Q1

REPORT INFORMATION
  Report Type: 
  Country: None (occurrence: None)
  Receive Date: 20060324
  Receipt Date: 20060320
  Transmission Date: 20060701
  Serious: Yes (Hospitalization)
  Sender: FDA-Public Use
  Company Number: 2006UW04785

PATIENT
  Age: 49 Year
  Sex: Male
  Weight: 77.7 kg

DRUGS (24)
  1. ELAVIL [Suspect]
     Indication: NEUROPATHY PERIPHERAL
  2. ELAVIL [Suspect]
     Dates: start: 20060206
  3. RADIATION [Concomitant]
  4. TMC114 [Suspect]
     Route: 048
     Dates: start: 20051107
  5. NORVIR [Suspect]
     Indication: HIV INFECTION
     Route: 048
     Dates: start: 20050105, end: 20051103
  6. NORVIR [Suspect]
     Route: 048
     Dates: start: 20051104
  7. CARBOPLATIN [Concomitant]
     Dosage: 5 DOSES
     Route: 042
     Dates: start: 20060215
  8. FLUOROURACIL [Concomitant]
     Route: 042
     Dates: start: 20060215
  9. LOMOTIL [Concomitant]
     Dosage: 2 DOSES IN ONE AS NECESSARY
     Route: 048
     Dates: start: 20060222
  10. ZERIT [Concomitant]
     Indication: HIV INFECTION
     Route: 048
  11. EPIVIR [Concomitant]
     Indication: HIV INFECTION
     Route: 048
  12. LISINOPRIL [Concomitant]
     Indication: HYPERTENSION
     Route: 048
  13. NEURONTIN [Concomitant]
     Indication: NEUROPATHY PERIPHERAL
     Route: 048
  14. ACYCLOVIR [Concomitant]
     Indication: HERPES SIMPLEX
     Route: 048
  15. AZITHROMYCIN [Concomitant]
     Indication: MYCOBACTERIUM AVIUM COMPLEX INFECTION
     Route: 048
  16. BUPROPION HCL [Concomitant]
     Indication: DEPRESSION
     Route: 048
  17. HUMULIN 70/30 [Concomitant]
     Indication: DIABETES MELLITUS
     Route: 058
  18. GEMFIBROZIL [Concomitant]
     Indication: LIPIDS INCREASED
     Route: 048
  19. LIPITOR [Concomitant]
     Indication: LIPIDS INCREASED
     Route: 048
  20. PENTAMIDINE [Concomitant]
     Indication: PNEUMOCYSTIS JIROVECI PNEUMONIA
     Route: 055
  21. ASPIRIN [Concomitant]
     Indication: MYOCARDIAL INFARCTION
     Route: 048
  22. VIAGRA [Concomitant]
     Indication: SEXUAL DYSFUNCTION
     Route: 048
     Dates: start: 20051109
  23. MULTIVITAMIN [Concomitant]
     Route: 048
     Dates: start: 20060103
  24. IMODIUM [Concomitant]
     Route: 048

REACTIONS (13)
  - ABDOMINAL PAIN [None]
  - ANTICHOLINERGIC SYNDROME [None]
  - BLOOD PRESSURE INCREASED [None]
  - COLITIS [None]
  - COORDINATION ABNORMAL [None]
  - DIFFICULTY IN WALKING [None]
  - DYSKINESIA [None]
  - FLAIL CHEST [None]
  - GASTROENTERITIS RADIATION [None]
  - MUCOSAL INFLAMMATION [None]
  - PANCYTOPENIA [None]
  - RESPIRATORY RATE INCREASED [None]
  - RESTLESSNESS [None]
